FAERS Safety Report 23973117 (Version 2)
Quarter: 2024Q2

REPORT INFORMATION
  Report Type: Spontaneous
  Country: LT (occurrence: LT)
  Receive Date: 20240613
  Receipt Date: 20240628
  Transmission Date: 20240715
  Serious: Yes (Life-Threatening, Other)
  Sender: FDA-Public Use
  Company Number: LT-TEVA-VS-3207674

PATIENT
  Age: 75 Year
  Sex: Male

DRUGS (1)
  1. OCTREOTIDE [Suspect]
     Active Substance: OCTREOTIDE\OCTREOTIDE ACETATE
     Indication: Neuroendocrine tumour
     Route: 065

REACTIONS (1)
  - Drug ineffective [Unknown]
